FAERS Safety Report 7707948-0 (Version None)
Quarter: 2011Q3

REPORT INFORMATION
  Report Type: 
  Country: None (occurrence: None)
  Receive Date: 20110824
  Receipt Date: 20110815
  Transmission Date: 20111222
  Serious: Yes (Hospitalization, Other)
  Sender: FDA-Public Use
  Company Number: US-ASTRAZENECA-2011SE48230

PATIENT
  Age: 44 Year
  Sex: Female

DRUGS (3)
  1. SEROQUEL XR [Suspect]
     Indication: ANTIDEPRESSANT THERAPY
     Route: 048
  2. SEROQUEL XR [Suspect]
     Indication: SLEEP DISORDER
     Route: 048
  3. SEROQUEL XR [Suspect]
     Indication: MENTAL DISORDER
     Route: 048

REACTIONS (14)
  - SUICIDAL IDEATION [None]
  - INSOMNIA [None]
  - HYPOAESTHESIA [None]
  - OFF LABEL USE [None]
  - LIMB OPERATION [None]
  - STRESS [None]
  - MENTAL DISORDER [None]
  - DRUG DOSE OMISSION [None]
  - PANIC ATTACK [None]
  - CRYING [None]
  - BIPOLAR DISORDER [None]
  - BIPOLAR I DISORDER [None]
  - DEPRESSION [None]
  - RESTLESSNESS [None]
